FAERS Safety Report 8346691-4 (Version None)
Quarter: 2012Q2

REPORT INFORMATION
  Report Type: 
  Country: None (occurrence: None)
  Receive Date: 20120509
  Receipt Date: 20120430
  Transmission Date: 20120825
  Serious: Yes (Hospitalization)
  Sender: FDA-Public Use
  Company Number: US-SANOFI-AVENTIS-2012SA012346

PATIENT
  Age: 72 Year
  Sex: Male
  Weight: 88.5 kg

DRUGS (20)
  1. DOCETAXEL [Suspect]
     Route: 042
     Dates: start: 20111214, end: 20111214
  2. DOCETAXEL [Suspect]
     Route: 042
     Dates: start: 20120215, end: 20120215
  3. WARFARIN SODIUM [Concomitant]
     Route: 048
     Dates: start: 20110401
  4. SEROQUEL [Concomitant]
     Route: 048
     Dates: start: 20000101
  5. LASIX [Concomitant]
     Route: 048
     Dates: start: 20120214
  6. SIMVASTATIN [Concomitant]
     Route: 048
     Dates: start: 20111129
  7. LEXAPRO [Concomitant]
     Route: 048
     Dates: start: 20120104
  8. POTASSIUM CHLORIDE [Concomitant]
     Route: 048
     Dates: start: 20120214
  9. METOPROLOL TARTRATE [Concomitant]
     Route: 048
     Dates: start: 20110101
  10. NEUPOGEN [Concomitant]
     Route: 058
     Dates: start: 20120113
  11. DEXAMETHASONE [Concomitant]
     Route: 065
  12. CALCIUM CARBONATE [Concomitant]
     Route: 048
     Dates: start: 20090101, end: 20120214
  13. MULTI-VITAMINS [Concomitant]
     Route: 048
     Dates: start: 20000101
  14. EX-LAX ^EX-LAX INC^ [Concomitant]
     Route: 048
     Dates: start: 20000101
  15. CRESTOR [Concomitant]
     Route: 048
     Dates: start: 20111130
  16. PREDNISONE TAB [Suspect]
     Route: 048
     Dates: start: 20111214, end: 20120218
  17. LORTAB [Concomitant]
     Route: 048
     Dates: start: 20111215
  18. CIPROFLOXACIN [Concomitant]
     Route: 048
     Dates: start: 20120112, end: 20120117
  19. CIPROFLOXACIN [Concomitant]
     Route: 048
     Dates: start: 20120201, end: 20120206
  20. ALL OTHER THERAPEUTIC PRODUCTS [Concomitant]
     Route: 048
     Dates: start: 20120214

REACTIONS (2)
  - CONSTIPATION [None]
  - GASTRIC ULCER [None]
